FAERS Safety Report 16535269 (Version 1)
Quarter: 2019Q3

REPORT INFORMATION
  Report Type: Spontaneous
  Country: US (occurrence: US)
  Receive Date: 20190705
  Receipt Date: 20190705
  Transmission Date: 20191004
  Serious: No
  Sender: FDA-Public Use
  Company Number: US-GW PHARMA-201905USGW1614

PATIENT

DRUGS (2)
  1. ONFI [Concomitant]
     Active Substance: CLOBAZAM
     Indication: PRODUCT USED FOR UNKNOWN INDICATION
     Dosage: UNK
     Route: 065
  2. EPIDIOLEX [Suspect]
     Active Substance: CANNABIDIOL
     Indication: LENNOX-GASTAUT SYNDROME
     Dosage: 9.86 MG/KG/DAY, 340 MILLIGRAM, BID
     Route: 048
     Dates: start: 20190423

REACTIONS (5)
  - Hyperphagia [Unknown]
  - Hunger [Unknown]
  - Stereotypy [Unknown]
  - Weight increased [Unknown]
  - Affective disorder [Unknown]

NARRATIVE: CASE EVENT DATE: 201905
